FAERS Safety Report 5987709-3 (Version None)
Quarter: 2008Q4

REPORT INFORMATION
  Report Type: 
  Country: None (occurrence: None)
  Receive Date: 20081209
  Receipt Date: 20081204
  Transmission Date: 20090506
  Serious: Yes (Other)
  Sender: FDA-Public Use
  Company Number: US-B.I. PHARMACEUTICALS,INC./RIDGEFIELD-2008-BP-16595PF

PATIENT
  Age: 62 Year
  Sex: Female

DRUGS (7)
  1. SPIRIVA [Suspect]
     Indication: CHRONIC OBSTRUCTIVE PULMONARY DISEASE
     Dosage: 18MCG
     Route: 055
     Dates: start: 20080801
  2. LIPITOR [Suspect]
     Dates: start: 20010101, end: 20081023
  3. NORVASC [Suspect]
     Indication: HYPERTENSION
  4. PREDNISONE TAB [Suspect]
     Indication: RESPIRATORY TRACT INFECTION
     Dates: start: 20081027
  5. SEREVENT [Suspect]
     Indication: EMPHYSEMA
     Dates: start: 20080801
  6. LISINOPRIL [Concomitant]
     Indication: HYPERTENSION
  7. ASPIRIN [Concomitant]
     Indication: CARDIAC DISORDER

REACTIONS (8)
  - ARTHRALGIA [None]
  - BONE PAIN [None]
  - DRUG INTERACTION [None]
  - MUSCULOSKELETAL PAIN [None]
  - MYALGIA [None]
  - NECK PAIN [None]
  - PAIN IN EXTREMITY [None]
  - UPPER RESPIRATORY TRACT INFECTION [None]
